FAERS Safety Report 17124350 (Version 4)
Quarter: 2020Q3

REPORT INFORMATION
  Report Type: Report from Study
  Country: US (occurrence: US)
  Receive Date: 20191206
  Receipt Date: 20200720
  Transmission Date: 20201102
  Serious: Yes (Hospitalization, Other)
  Sender: FDA-Public Use
  Company Number: US-GLAXOSMITHKLINE-2019-TSO01024-US

PATIENT
  Age: 68 Year
  Sex: Female

DRUGS (4)
  1. NIRAPARIB [Suspect]
     Active Substance: NIRAPARIB
     Indication: MALIGNANT PERITONEAL NEOPLASM
     Dosage: 300 MG?5PM?W/O FOOD
     Route: 065
     Dates: start: 20190208
  2. NIRAPARIB [Suspect]
     Active Substance: NIRAPARIB
     Dosage: 100 MG, QD
     Route: 048
  3. NIRAPARIB [Suspect]
     Active Substance: NIRAPARIB
     Dosage: 300 MG, QD
  4. NIRAPARIB [Suspect]
     Active Substance: NIRAPARIB
     Indication: OVARIAN CANCER
     Dosage: 200 MG, QD
     Route: 048

REACTIONS (23)
  - Abdominal distension [Recovered/Resolved]
  - Heart rate increased [Recovered/Resolved]
  - Thrombosis [Unknown]
  - Carbohydrate antigen 125 increased [Not Recovered/Not Resolved]
  - Upper-airway cough syndrome [Unknown]
  - Diarrhoea [Recovered/Resolved]
  - Dyspnoea exertional [Not Recovered/Not Resolved]
  - Hospitalisation [Unknown]
  - Sleep disorder [Recovered/Resolved]
  - Fatigue [Not Recovered/Not Resolved]
  - Dehydration [Recovered/Resolved]
  - Muscle spasms [Recovered/Resolved]
  - Dyspepsia [Unknown]
  - Blood pressure increased [Recovering/Resolving]
  - Nausea [Unknown]
  - Feeling cold [Recovered/Resolved]
  - Constipation [Recovered/Resolved]
  - Cardiac flutter [Recovered/Resolved]
  - Rhinorrhoea [Unknown]
  - Illness [Unknown]
  - Flatulence [Not Recovered/Not Resolved]
  - Insomnia [Unknown]
  - Decreased appetite [Recovered/Resolved]

NARRATIVE: CASE EVENT DATE: 2019
